FAERS Safety Report 7586501-6 (Version None)
Quarter: 2011Q3

REPORT INFORMATION
  Report Type: 
  Country: None (occurrence: None)
  Receive Date: 20110701
  Receipt Date: 20110627
  Transmission Date: 20111222
  Serious: Yes (Death)
  Sender: FDA-Public Use
  Company Number: US-ROCHE-782955

PATIENT
  Sex: Female
  Weight: 82.6 kg

DRUGS (2)
  1. PACLITAXEL [Suspect]
     Dosage: FREQ:  D1,8,15 OF 28 DAY CYCLE
     Route: 042
     Dates: start: 20100511
  2. BEVACIZUMAB [Suspect]
     Indication: BREAST CANCER
     Route: 042
     Dates: start: 20100511

REACTIONS (5)
  - RETROPERITONEAL HAEMORRHAGE [None]
  - HYPOTENSION [None]
  - MULTI-ORGAN FAILURE [None]
  - SHOCK [None]
  - GASTROINTESTINAL PERFORATION [None]
